FAERS Safety Report 11373515 (Version 1)
Quarter: 2015Q3

REPORT INFORMATION
  Report Type: Spontaneous
  Country: US (occurrence: US)
  Receive Date: 20150812
  Receipt Date: 20150812
  Transmission Date: 20151125
  Serious: Yes (Other)
  Sender: FDA-Public Use
  Company Number: US-ALLERGAN-1515538US

PATIENT
  Age: 79 Year
  Sex: Female

DRUGS (2)
  1. PREDNISOLONE ACETATE, 1.0% [Suspect]
     Active Substance: PREDNISOLONE ACETATE
     Indication: PRODUCT USED FOR UNKNOWN INDICATION
     Dosage: 1 GTT, QD
     Route: 047
  2. RESTASIS [Suspect]
     Active Substance: CYCLOSPORINE
     Indication: DRY EYE
     Dosage: 2 GTT, Q12H
     Route: 047

REACTIONS (7)
  - Glaucoma [Not Recovered/Not Resolved]
  - Suture removal [Not Recovered/Not Resolved]
  - Wrong technique in product usage process [Unknown]
  - Retinal tear [Unknown]
  - Visual acuity reduced [Not Recovered/Not Resolved]
  - Corrective lens user [Not Recovered/Not Resolved]
  - Corneal transplant [Unknown]

NARRATIVE: CASE EVENT DATE: 2003
